FAERS Safety Report 10253196 (Version 4)
Quarter: 2014Q4

REPORT INFORMATION
  Report Type: Spontaneous
  Country: IT (occurrence: IT)
  Receive Date: 20140623
  Receipt Date: 20141114
  Transmission Date: 20150528
  Serious: Yes (Life-Threatening, Hospitalization)
  Sender: FDA-Public Use
  Company Number: IT-BRISTOL-MYERS SQUIBB COMPANY-21017470

PATIENT
  Age: 61 Year
  Sex: Male

DRUGS (8)
  1. DENIBAN [Suspect]
     Active Substance: AMISULPRIDE
     Dosage: 2 TABLETS/DAILY?50MG TABS
     Route: 048
     Dates: start: 20140423, end: 20140423
  2. SIMVASTATIN. [Suspect]
     Active Substance: SIMVASTATIN
     Dosage: 1 TABLET/DAILY
     Route: 048
     Dates: start: 20140423, end: 20140423
  3. METFORMIN HCL TABS [Suspect]
     Active Substance: METFORMIN HYDROCHLORIDE
     Dosage: 3TABLETS/DAILY
     Route: 048
     Dates: start: 20140423, end: 20140423
  4. VASORETIC [Suspect]
     Active Substance: ENALAPRIL MALEATE\HYDROCHLOROTHIAZIDE
     Dosage: 1 TABLET/DAILY?20 MG+ 12.5 MG
     Route: 048
     Dates: start: 20140423, end: 20140423
  5. ZOLPIDEM [Suspect]
     Active Substance: ZOLPIDEM\ZOLPIDEM TARTRATE
     Route: 048
     Dates: start: 20140423, end: 20140423
  6. CITALOPRAM [Suspect]
     Active Substance: CITALOPRAM HYDROBROMIDE
     Dosage: 2 TABLETS/DAILY
     Route: 048
     Dates: start: 20140423, end: 20140423
  7. LANSOPRAZOLE. [Suspect]
     Active Substance: LANSOPRAZOLE
     Dosage: 2 TABLETS/DAILY
     Route: 048
     Dates: start: 20140423, end: 20140423
  8. ZEFFIX [Suspect]
     Active Substance: LAMIVUDINE
     Dosage: 100 MG, TABLET
     Route: 048
     Dates: start: 20140423, end: 20140423

REACTIONS (7)
  - Intentional self-injury [Recovered/Resolved]
  - Drug abuse [Unknown]
  - Overdose [Recovered/Resolved]
  - Depressed level of consciousness [Recovered/Resolved]
  - Metabolic acidosis [Recovered/Resolved]
  - Hypotension [Recovered/Resolved]
  - Conduction disorder [Recovered/Resolved]

NARRATIVE: CASE EVENT DATE: 20140423
